FAERS Safety Report 12509007 (Version 2)
Quarter: 2016Q3

REPORT INFORMATION
  Report Type: Report from Study
  Country: MX (occurrence: MX)
  Receive Date: 20160629
  Receipt Date: 20160714
  Transmission Date: 20161109
  Serious: No
  Sender: FDA-Public Use
  Company Number: PHHY2016MX088774

PATIENT
  Sex: Female
  Weight: 50 kg

DRUGS (6)
  1. OMEPRAZOLE. [Concomitant]
     Active Substance: OMEPRAZOLE
     Indication: GASTRITIS
     Dosage: 1 DF, PRN (ONLY WHEN FEELING UNWELL)
     Route: 048
  2. RIOPAN [Concomitant]
     Active Substance: MAGALDRATE
     Indication: GASTRITIS
     Dosage: 1 TSP, PRN (AFTER THE MEALS ONLY WHEN FEELING UNWELL)
     Route: 048
  3. CALCITRIOL. [Concomitant]
     Active Substance: CALCITRIOL
     Indication: OSTEOPOROSIS
     Dosage: 2 DF, QD
     Route: 048
     Dates: start: 2008
  4. PEMIX [Concomitant]
     Indication: REFLUX GASTRITIS
     Dosage: 1 DF, QD (A QUEARTER HOUR BEFORE THE MEALS)
     Route: 048
     Dates: start: 2008
  5. VITAMIN D3 [Concomitant]
     Active Substance: CHOLECALCIFEROL
     Indication: CALCIUM DEFICIENCY
     Dosage: 2 DF, QD
     Route: 048
     Dates: start: 2008
  6. ZOMETA [Suspect]
     Active Substance: ZOLEDRONIC ACID
     Indication: OSTEOPOROSIS
     Dosage: 4 MG, EVERY YEAR (ANUALLY)
     Route: 042
     Dates: start: 2011

REACTIONS (4)
  - Concomitant disease aggravated [Not Recovered/Not Resolved]
  - Disease progression [Unknown]
  - Product use issue [Unknown]
  - Hypoacusis [Not Recovered/Not Resolved]

NARRATIVE: CASE EVENT DATE: 2011
